FAERS Safety Report 8622544 (Version 3)
Quarter: 2012Q4

REPORT INFORMATION
  Report Type: Report from Study
  Country: GB (occurrence: GB)
  Receive Date: 20120619
  Receipt Date: 20120907
  Transmission Date: 20130627
  Serious: Yes (Hospitalization)
  Sender: FDA-Public Use
  Company Number: GB-VIIV HEALTHCARE LIMITED-A0981452A

PATIENT
  Age: 25 Year
  Sex: Female

DRUGS (8)
  1. COMBIVIR [Suspect]
     Indication: ANTIRETROVIRAL THERAPY
     Dosage: 2TAB Per day
     Route: 048
     Dates: start: 20120319
  2. EPZICOM [Suspect]
     Indication: ANTIRETROVIRAL THERAPY
     Dosage: 1TAB Per day
     Route: 048
     Dates: start: 20120305, end: 20120319
  3. KALETRA [Suspect]
     Indication: ANTIRETROVIRAL THERAPY
     Dosage: 2TAB Per day
     Route: 048
     Dates: start: 20120305, end: 20120319
  4. TRUVADA [Suspect]
     Indication: ANTIRETROVIRAL THERAPY
     Dosage: 1TAB Per day
     Route: 048
     Dates: start: 20100713, end: 20111108
  5. SELZENTRY [Suspect]
     Indication: ANTIRETROVIRAL THERAPY
     Dosage: 300MGD Per day
     Route: 048
     Dates: start: 20100713, end: 20111108
  6. NORVIR [Suspect]
     Indication: ANTIRETROVIRAL THERAPY
     Dosage: 100MGD Per day
     Route: 048
     Dates: start: 20100713, end: 20111108
  7. RALTEGRAVIR [Suspect]
     Indication: ANTIRETROVIRAL THERAPY
     Dosage: 80MGD Per day
     Route: 048
     Dates: start: 20100713, end: 20111108
  8. PREZISTA [Suspect]
     Indication: ANTIRETROVIRAL THERAPY
     Dosage: 800MGD Per day
     Route: 048
     Dates: start: 20100713, end: 20111108

REACTIONS (5)
  - Hepatocellular injury [Unknown]
  - Aspartate aminotransferase increased [Unknown]
  - Alanine aminotransferase increased [Unknown]
  - Exposure during pregnancy [Unknown]
  - Live birth [Unknown]
